FAERS Safety Report 20187006 (Version 1)
Quarter: 2021Q4

REPORT INFORMATION
  Report Type: Spontaneous
  Country: US (occurrence: None)
  Receive Date: 20211214
  Receipt Date: 20211214
  Transmission Date: 20220303
  Serious: No
  Sender: FDA-Public Use
  Company Number: None

PATIENT
  Sex: Female

DRUGS (1)
  1. OTEZLA [Suspect]
     Active Substance: APREMILAST
     Indication: Psoriasis
     Dosage: DAY 1: 10MG IN AM, DAY 2: 10MG AM AND PM, DAY 3. 10MG AM AND 20MG PM, DAY 4: 20MG AM AND PM, DAY 5:
     Dates: start: 202110

REACTIONS (4)
  - Blood pressure increased [None]
  - Nausea [None]
  - Abdominal pain upper [None]
  - Headache [None]
